FAERS Safety Report 5411253-5 (Version None)
Quarter: 2007Q3

REPORT INFORMATION
  Report Type: 
  Country: None (occurrence: None)
  Receive Date: 20070810
  Receipt Date: 20070731
  Transmission Date: 20080115
  Serious: Yes (Other)
  Sender: FDA-Public Use
  Company Number: JP-JNJFOC-20070800923

PATIENT
  Age: 73 Year
  Sex: Female

DRUGS (5)
  1. ITRACONAZOLE [Suspect]
     Indication: SYSTEMIC MYCOSIS
     Route: 041
  2. ITRACONAZOLE [Suspect]
     Route: 048
  3. RIZE [Concomitant]
     Indication: ANXIETY DISORDER
     Route: 048
  4. CLARITHROMYCIN [Concomitant]
     Indication: BRONCHITIS CHRONIC
     Route: 048
  5. PREDNISOLONE [Concomitant]
     Indication: BRONCHOPULMONARY ASPERGILLOSIS ALLERGIC
     Route: 048

REACTIONS (3)
  - BRONCHOPULMONARY ASPERGILLOSIS ALLERGIC [None]
  - EOSINOPHILIA [None]
  - INJECTION SITE PHLEBITIS [None]
